FAERS Safety Report 12622050 (Version 1)
Quarter: 2016Q3

REPORT INFORMATION
  Report Type: Spontaneous
  Country: US (occurrence: US)
  Receive Date: 20160804
  Receipt Date: 20160804
  Transmission Date: 20161109
  Serious: No
  Sender: FDA-Public Use
  Company Number: US-BAYER-2016-142461

PATIENT
  Age: 55 Year
  Sex: Female

DRUGS (1)
  1. BETASERON [Suspect]
     Active Substance: INTERFERON BETA-1B
     Dosage: UNK

REACTIONS (6)
  - Asthenia [None]
  - Sluggishness [None]
  - Drug dose omission [None]
  - Feeling jittery [None]
  - Feeling abnormal [None]
  - Patient dissatisfaction with treatment [None]
